FAERS Safety Report 4700233-0 (Version None)
Quarter: 2005Q2

REPORT INFORMATION
  Report Type: 
  Country: None (occurrence: None)
  Receive Date: 20050627
  Receipt Date: 20050607
  Transmission Date: 20051028
  Serious: Yes (Hospitalization)
  Sender: FDA-Public Use
  Company Number: JP-JNJFOC-20050603231

PATIENT
  Sex: Female

DRUGS (4)
  1. DUROTEP [Suspect]
     Indication: CANCER PAIN
     Route: 062
     Dates: start: 20050531
  2. AMLODIPINE BESYLATE [Concomitant]
     Route: 049
     Dates: start: 20020628
  3. DOMPERIDONE [Concomitant]
     Route: 049
     Dates: start: 20050601, end: 20050605
  4. MORPHINE HCL ELIXIR [Concomitant]
     Dosage: PRN
     Route: 049
     Dates: start: 20050601

REACTIONS (3)
  - DIARRHOEA [None]
  - PAIN [None]
  - POLLAKIURIA [None]
